FAERS Safety Report 10433708 (Version 3)
Quarter: 2015Q1

REPORT INFORMATION
  Report Type: Report from Study
  Country: DE (occurrence: DE)
  Receive Date: 20140905
  Receipt Date: 20150324
  Transmission Date: 20150720
  Serious: Yes (Hospitalization)
  Sender: FDA-Public Use
  Company Number: DE-SA-2014SA113692

PATIENT
  Age: 64 Year
  Sex: Female
  Weight: 85 kg

DRUGS (8)
  1. ZALTRAP [Suspect]
     Active Substance: ZIV-AFLIBERCEPT
     Indication: COLORECTAL CANCER METASTATIC
     Route: 042
     Dates: start: 20140708, end: 20140708
  2. FOLINIC ACID [Concomitant]
     Active Substance: LEUCOVORIN
     Dates: start: 20140805, end: 20140805
  3. IRINOTECAN [Concomitant]
     Active Substance: IRINOTECAN
     Dates: start: 20140708, end: 20140708
  4. 5-FU [Concomitant]
     Active Substance: FLUOROURACIL
     Dates: start: 20140708, end: 20140708
  5. 5-FU [Concomitant]
     Active Substance: FLUOROURACIL
     Dates: start: 20140805, end: 20140805
  6. ZALTRAP [Suspect]
     Active Substance: ZIV-AFLIBERCEPT
     Indication: COLORECTAL CANCER METASTATIC
     Route: 042
     Dates: start: 20140805, end: 20140805
  7. FOLINIC ACID [Concomitant]
     Active Substance: LEUCOVORIN
     Dates: start: 20140708, end: 20140708
  8. IRINOTECAN [Concomitant]
     Active Substance: IRINOTECAN
     Dates: start: 20140805, end: 20140805

REACTIONS (3)
  - General physical health deterioration [Not Recovered/Not Resolved]
  - Septic shock [Unknown]
  - Acute kidney injury [Unknown]

NARRATIVE: CASE EVENT DATE: 20140818
